FAERS Safety Report 5110679-7 (Version None)
Quarter: 2006Q3

REPORT INFORMATION
  Report Type: 
  Country: None (occurrence: None)
  Receive Date: 20060919
  Receipt Date: 20060911
  Transmission Date: 20061208
  Serious: Yes (Other)
  Sender: FDA-Public Use
  Company Number: S06-USA-03683-01

PATIENT
  Age: 30 Year
  Sex: Female

DRUGS (12)
  1. LEXAPRO [Suspect]
     Indication: ANXIETY
     Dosage: 10 MG QD PO
     Route: 048
     Dates: start: 20040101, end: 20060701
  2. LEXAPRO [Suspect]
     Indication: DEPRESSION
     Dosage: 10 MG QD PO
     Route: 048
     Dates: start: 20040101, end: 20060701
  3. LEXAPRO [Suspect]
     Indication: ANXIETY
     Dosage: 30 MG QD PO
     Route: 048
     Dates: start: 20060801, end: 20060801
  4. LEXAPRO [Suspect]
     Indication: DEPRESSION
     Dosage: 30 MG QD PO
     Route: 048
     Dates: start: 20060801, end: 20060801
  5. LEXAPRO [Suspect]
     Indication: ANXIETY
     Dosage: 20 MG QD PO
     Route: 048
     Dates: start: 20060801, end: 20060901
  6. LEXAPRO [Suspect]
     Indication: DEPRESSION
     Dosage: 20 MG QD PO
     Route: 048
     Dates: start: 20060801, end: 20060901
  7. LEXAPRO [Suspect]
     Indication: ANXIETY
     Dosage: 15 MG QD PO
     Route: 048
     Dates: start: 20060801, end: 20060901
  8. LEXAPRO [Suspect]
     Indication: DEPRESSION
     Dosage: 15 MG QD PO
     Route: 048
     Dates: start: 20060801, end: 20060901
  9. LEXAPRO [Suspect]
     Indication: ANXIETY
     Dosage: 14 MG QD PO
     Route: 048
     Dates: start: 20060917
  10. LEXAPRO [Suspect]
     Indication: DEPRESSION
     Dosage: 14 MG QD PO
     Route: 048
     Dates: start: 20060917
  11. CLONAZEPAM [Concomitant]
  12. BIRTH CONTROL PILLS [Concomitant]

REACTIONS (3)
  - AKATHISIA [None]
  - HEADACHE [None]
  - RESTLESS LEGS SYNDROME [None]
